FAERS Safety Report 16389248 (Version 1)
Quarter: 2019Q2

REPORT INFORMATION
  Report Type: Spontaneous
  Country: IN (occurrence: IN)
  Receive Date: 20190604
  Receipt Date: 20190604
  Transmission Date: 20190711
  Serious: Yes (Other)
  Sender: FDA-Public Use
  Company Number: IN-PFIZER INC-2019230340

PATIENT
  Age: 41 Year
  Sex: Female

DRUGS (2)
  1. CYTOSAR [Suspect]
     Active Substance: CYTARABINE
     Indication: ACUTE MYELOID LEUKAEMIA
     Dosage: 100 MG/M2, CYCLIC (7+3 INDUCTION,BY CONTINUOUS INFUSION )
  2. DAUNORUBICIN [Concomitant]
     Active Substance: DAUNORUBICIN
     Indication: ACUTE MYELOID LEUKAEMIA
     Dosage: 60 MG/M2, CYCLIC (7+3 INDUCTION)

REACTIONS (3)
  - Erythema [Recovered/Resolved]
  - Febrile neutropenia [Unknown]
  - Drug eruption [Recovered/Resolved]
